FAERS Safety Report 20197120 (Version 1)
Quarter: 2021Q4

REPORT INFORMATION
  Report Type: Spontaneous
  Country: US (occurrence: US)
  Receive Date: 20211217
  Receipt Date: 20211217
  Transmission Date: 20220304
  Serious: No
  Sender: FDA-Public Use
  Company Number: US-BRISTOL-MYERS SQUIBB COMPANY-BMS-2021-137305

PATIENT
  Age: 57 Year
  Sex: Male
  Weight: 171.91 kg

DRUGS (1)
  1. ELIQUIS [Suspect]
     Active Substance: APIXABAN
     Indication: Cerebrovascular accident prophylaxis
     Dosage: UNK UNK, BID
     Route: 048
     Dates: start: 20211208

REACTIONS (2)
  - Pollakiuria [Unknown]
  - Cough [Unknown]

NARRATIVE: CASE EVENT DATE: 20211201
